FAERS Safety Report 4666853-7 (Version None)
Quarter: 2005Q2

REPORT INFORMATION
  Report Type: 
  Country: None (occurrence: None)
  Receive Date: 20050519
  Receipt Date: 20050218
  Transmission Date: 20051028
  Serious: Yes (Hospitalization, Disabling)
  Sender: FDA-Public Use
  Company Number: US-MERCK-0502USA02979

PATIENT
  Age: 54 Year
  Sex: Female
  Weight: 74 kg

DRUGS (8)
  1. VIOXX [Suspect]
     Indication: RESTLESS LEGS SYNDROME
     Route: 048
     Dates: start: 20010726, end: 20040113
  2. VIOXX [Suspect]
     Indication: EPICONDYLITIS
     Route: 048
     Dates: start: 20010726, end: 20040113
  3. PREMPRO (PREMARIN;CYCRIN 14/14) [Concomitant]
     Indication: HOT FLUSH
     Route: 048
     Dates: start: 19980101, end: 20040112
  4. ADVIL [Concomitant]
     Route: 065
  5. NEURONTIN [Concomitant]
     Indication: PAIN IN EXTREMITY
     Route: 048
     Dates: start: 20000101
  6. TYLENOL (CAPLET) [Concomitant]
     Route: 048
     Dates: start: 19990101, end: 20040101
  7. KLONOPIN [Concomitant]
     Indication: RESTLESS LEGS SYNDROME
     Route: 065
     Dates: start: 19990101
  8. ASPIRIN [Concomitant]
     Indication: ANTICOAGULANT THERAPY
     Route: 065

REACTIONS (8)
  - CEREBRAL ARTERY STENOSIS [None]
  - CEREBROVASCULAR ACCIDENT [None]
  - DEPRESSION [None]
  - HYPERTENSION [None]
  - IDIOPATHIC THROMBOCYTOPENIC PURPURA [None]
  - ISCHAEMIA [None]
  - MEMORY IMPAIRMENT [None]
  - URINARY TRACT INFECTION [None]
